FAERS Safety Report 21532847 (Version 1)
Quarter: 2022Q4

REPORT INFORMATION
  Report Type: Spontaneous
  Country: US (occurrence: US)
  Receive Date: 20221101
  Receipt Date: 20221101
  Transmission Date: 20230112
  Serious: Yes (Other)
  Sender: FDA-Public Use
  Company Number: US-GLAXOSMITHKLINE-US2022153760

PATIENT
  Sex: Male
  Weight: 86.18 kg

DRUGS (1)
  1. LAMICTAL [Suspect]
     Active Substance: LAMOTRIGINE
     Indication: Seizure
     Dosage: 1 DF, QD , 150 MG,ONE TABLET DAILY
     Route: 048

REACTIONS (2)
  - Seizure [Unknown]
  - Intentional underdose [Unknown]
